FAERS Safety Report 12674602 (Version 3)
Quarter: 2016Q3

REPORT INFORMATION
  Report Type: Spontaneous
  Country: US (occurrence: US)
  Receive Date: 20160823
  Receipt Date: 20160825
  Transmission Date: 20161109
  Serious: Yes (Other)
  Sender: FDA-Public Use
  Company Number: US-LUPIN PHARMACEUTICALS INC.-E2B_00005952

PATIENT
  Age: 68 Year
  Sex: Female
  Weight: 69.92 kg

DRUGS (5)
  1. AMLODIPINE BESYLATE TABLETS 2.5 MG [Interacting]
     Active Substance: AMLODIPINE BESYLATE
     Indication: BLOOD PRESSURE INCREASED
     Route: 048
  2. LOSARTAN. [Suspect]
     Active Substance: LOSARTAN
     Indication: BLOOD PRESSURE INCREASED
  3. BABY ASPIRIN [Interacting]
     Active Substance: ASPIRIN
     Indication: BACK PAIN
     Route: 065
  4. LOSARTAN. [Suspect]
     Active Substance: LOSARTAN
     Indication: LABILE BLOOD PRESSURE
     Route: 065
  5. AMLODIPINE BESYLATE TABLETS 2.5 MG [Suspect]
     Active Substance: AMLODIPINE BESYLATE
     Indication: LABILE BLOOD PRESSURE
     Route: 048
     Dates: start: 20150501

REACTIONS (18)
  - Back pain [Not Recovered/Not Resolved]
  - Muscular weakness [Not Recovered/Not Resolved]
  - Eye pain [Not Recovered/Not Resolved]
  - Drug ineffective [Unknown]
  - Fatigue [Not Recovered/Not Resolved]
  - Blood pressure abnormal [Not Recovered/Not Resolved]
  - Pain in extremity [Unknown]
  - Constipation [Unknown]
  - Dysplasia [Unknown]
  - Hypertension [Unknown]
  - Dizziness [Not Recovered/Not Resolved]
  - Oedema [Not Recovered/Not Resolved]
  - Palpitations [Not Recovered/Not Resolved]
  - Musculoskeletal discomfort [Not Recovered/Not Resolved]
  - Drug interaction [Unknown]
  - Wrong technique in product usage process [Unknown]
  - Asthenia [Not Recovered/Not Resolved]
  - Gait disturbance [Not Recovered/Not Resolved]

NARRATIVE: CASE EVENT DATE: 20160501
